FAERS Safety Report 4736018-9 (Version None)
Quarter: 2005Q3

REPORT INFORMATION
  Report Type: 
  Country: None (occurrence: None)
  Receive Date: 20050805
  Receipt Date: 20050505
  Transmission Date: 20060218
  Serious: Yes (Hospitalization)
  Sender: FDA-Public Use
  Company Number: US-MERCK-0505USA00768

PATIENT
  Age: 59 Year
  Sex: Female
  Weight: 91 kg

DRUGS (7)
  1. VIOXX [Suspect]
     Indication: RHEUMATOID ARTHRITIS
     Route: 048
     Dates: start: 20020627, end: 20030701
  2. UNIRETIC [Concomitant]
     Indication: HYPERTENSION
     Route: 065
     Dates: start: 20011001, end: 20030401
  3. TYLENOL (CAPLET) [Concomitant]
     Route: 065
     Dates: start: 19950101
  4. GLIPIZIDE [Concomitant]
     Route: 065
     Dates: start: 20000922
  5. METFORMIN [Concomitant]
     Route: 065
     Dates: start: 20020208
  6. PREDNISONE [Concomitant]
     Route: 065
     Dates: start: 19980712
  7. ZOLOFT [Concomitant]
     Route: 065
     Dates: start: 20020726

REACTIONS (13)
  - ATHEROSCLEROSIS [None]
  - CHEST PAIN [None]
  - DEPRESSION [None]
  - DYSPEPSIA [None]
  - GASTRIC DISORDER [None]
  - HEART RATE IRREGULAR [None]
  - JOINT INJURY [None]
  - JOINT SWELLING [None]
  - MYOCARDIAL INFARCTION [None]
  - NAUSEA [None]
  - OEDEMA PERIPHERAL [None]
  - PNEUMONIA [None]
  - STOMACH DISCOMFORT [None]
